FAERS Safety Report 13639069 (Version 1)
Quarter: 2017Q2

REPORT INFORMATION
  Report Type: Spontaneous
  Country: US (occurrence: US)
  Receive Date: 20170609
  Receipt Date: 20170609
  Transmission Date: 20170830
  Serious: No
  Sender: FDA-Public Use
  Company Number: US-ROCHE-1485128

PATIENT
  Sex: Female

DRUGS (8)
  1. KLONOPIN [Suspect]
     Active Substance: CLONAZEPAM
     Indication: ANXIETY
     Route: 065
  2. CLONAZEPAM. [Suspect]
     Active Substance: CLONAZEPAM
     Indication: ANXIETY
     Route: 065
  3. ALTACE [Concomitant]
     Active Substance: RAMIPRIL
     Indication: HYPERTENSION
     Route: 065
  4. CLONAZEPAM. [Suspect]
     Active Substance: CLONAZEPAM
     Indication: STRESS
  5. TOPROL XL [Concomitant]
     Active Substance: METOPROLOL SUCCINATE
     Indication: HYPERTENSION
     Route: 065
  6. KLONOPIN [Suspect]
     Active Substance: CLONAZEPAM
     Indication: FEAR
  7. KLONOPIN [Suspect]
     Active Substance: CLONAZEPAM
     Indication: STRESS
  8. CLONAZEPAM. [Suspect]
     Active Substance: CLONAZEPAM
     Indication: FEAR

REACTIONS (3)
  - Drug ineffective [Unknown]
  - Hypertension [Not Recovered/Not Resolved]
  - Feeling jittery [Not Recovered/Not Resolved]
